FAERS Safety Report 9786568 (Version 2)
Quarter: 2013Q4

REPORT INFORMATION
  Report Type: Spontaneous
  Country: US (occurrence: US)
  Receive Date: 20131227
  Receipt Date: 20131227
  Transmission Date: 20140711
  Serious: Yes (Hospitalization, Other)
  Sender: FDA-Public Use
  Company Number: US-AMGEN-USASP2013078357

PATIENT
  Age: 69 Year
  Sex: Female

DRUGS (12)
  1. PROLIA [Suspect]
     Indication: OSTEOPOROSIS POSTMENOPAUSAL
     Dosage: UNK, UNK
     Route: 065
     Dates: start: 20130528
  2. ALPRAZOLAM [Concomitant]
     Indication: STRESS AT WORK
     Dosage: UNK UNK, BID
  3. VITAMIN C                          /00008001/ [Concomitant]
     Dosage: 1000 MG, QD
  4. CALCIUM [Concomitant]
     Dosage: 1200 MG, QD
  5. VITAMIN D3 [Concomitant]
     Dosage: 400 UNIT, UNK
  6. LISINOPRIL [Concomitant]
     Dosage: 2.5 MG, QD
  7. OMEPRAZOLE [Concomitant]
     Dosage: UNK UNK, QD
  8. SIMVASTATIN [Concomitant]
     Dosage: 40 MG, QD
  9. B12                                /00056201/ [Concomitant]
     Dosage: UNK UNK, QMO
  10. FLUOCINONIDE [Concomitant]
     Indication: ALOPECIA
     Dosage: UNK
  11. HYDROCODONE [Concomitant]
     Indication: BACK PAIN
     Dosage: 1 DF, Q4H (12 TABLETS Q4H)
  12. ATENOLOL [Concomitant]

REACTIONS (14)
  - Diverticulitis [Unknown]
  - Colitis [Unknown]
  - Anaemia [Unknown]
  - Hypotension [Unknown]
  - Presyncope [Unknown]
  - Feeling abnormal [Unknown]
  - Alopecia [Not Recovered/Not Resolved]
  - Scratch [Unknown]
  - Back pain [Unknown]
  - Pruritus [Unknown]
  - Fall [Unknown]
  - Mobility decreased [Unknown]
  - Gait disturbance [Unknown]
  - Asthenia [Unknown]
